FAERS Safety Report 20144912 (Version 1)
Quarter: 2021Q4

REPORT INFORMATION
  Report Type: Spontaneous
  Country: US (occurrence: None)
  Receive Date: 20211202
  Receipt Date: 20211202
  Transmission Date: 20220303
  Serious: Yes (Other)
  Sender: FDA-Public Use
  Company Number: None

PATIENT
  Age: 74 Year
  Sex: Female
  Weight: 67.5 kg

DRUGS (1)
  1. PREDNISOLONE ACETATE PF [Suspect]
     Active Substance: PREDNISOLONE ACETATE
     Indication: Product used for unknown indication
     Dosage: FREQUENCY : 4 TIMES A DAY;?
     Route: 047
     Dates: start: 20211026, end: 20211101

REACTIONS (3)
  - Hypoaesthesia [None]
  - Swelling [None]
  - Muscle spasms [None]

NARRATIVE: CASE EVENT DATE: 20211030
